FAERS Safety Report 6977343-0 (Version None)
Quarter: 2010Q3

REPORT INFORMATION
  Report Type: 
  Country: None (occurrence: None)
  Receive Date: 20100910
  Receipt Date: 20100901
  Transmission Date: 20110219
  Serious: Yes (Other)
  Sender: FDA-Public Use
  Company Number: PHHY2005BR02160

PATIENT
  Age: 60 Year
  Sex: Female

DRUGS (2)
  1. DIOVAN [Suspect]
     Dosage: 160 MG
  2. DIOVAN HCT [Suspect]
     Dosage: 160/12.5 MG

REACTIONS (4)
  - CARDIAC DISORDER [None]
  - HYPERSENSITIVITY [None]
  - PRURITUS [None]
  - SKIN DISCOLOURATION [None]
